FAERS Safety Report 6780739-3 (Version None)
Quarter: 2010Q2

REPORT INFORMATION
  Report Type: 
  Country: None (occurrence: None)
  Receive Date: 20100621
  Receipt Date: 20100614
  Transmission Date: 20101027
  Serious: Yes (Hospitalization)
  Sender: FDA-Public Use
  Company Number: US-JNJCH-2010014181

PATIENT
  Age: 28 Year
  Sex: Male

DRUGS (3)
  1. DIPHENHYDRAMINE [Suspect]
     Indication: SUICIDE ATTEMPT
     Dosage: TEXT:4 GRAMS
     Route: 048
  2. ACETAMINOPHEN [Suspect]
     Indication: SUICIDE ATTEMPT
     Dosage: TEXT:50 GRAMS
     Route: 048
  3. ALCOHOL [Suspect]
     Indication: SUICIDE ATTEMPT
     Dosage: TEXT:UNKNOWN
     Route: 048

REACTIONS (1)
  - OVERDOSE [None]
